FAERS Safety Report 6463927-5 (Version None)
Quarter: 2009Q4

REPORT INFORMATION
  Report Type: 
  Country: None (occurrence: None)
  Receive Date: 20091201
  Receipt Date: 20091117
  Transmission Date: 20100525
  Serious: Yes (Other)
  Sender: FDA-Public Use
  Company Number: US-JNJFOC-20091105598

PATIENT
  Sex: Male

DRUGS (1)
  1. SANDOZ FENTANYL TRANSDERMAL PATCH [Suspect]
     Indication: BACK PAIN
     Dosage: ONE PATCH OF 50 UG/HR + ONE PATCH OF 100 UG/HR
     Route: 062

REACTIONS (2)
  - INTENTIONAL DRUG MISUSE [None]
  - WRONG TECHNIQUE IN DRUG USAGE PROCESS [None]
